FAERS Safety Report 5894534-0 (Version None)
Quarter: 2008Q3

REPORT INFORMATION
  Report Type: 
  Country: None (occurrence: None)
  Receive Date: 20080924
  Receipt Date: 20080915
  Transmission Date: 20090109
  Serious: Yes (Other)
  Sender: FDA-Public Use
  Company Number: US-JNJFOC-20080901787

PATIENT
  Sex: Male

DRUGS (1)
  1. LEVAQUIN [Suspect]
     Indication: PYREXIA
     Dosage: 3 PILLS(3 DOSES)
     Route: 048

REACTIONS (1)
  - SYSTEMIC LUPUS ERYTHEMATOSUS [None]
